FAERS Safety Report 10076657 (Version 1)
Quarter: 2014Q2

REPORT INFORMATION
  Report Type: Spontaneous
  Country: US (occurrence: US)
  Receive Date: 20140414
  Receipt Date: 20140414
  Transmission Date: 20141212
  Serious: No
  Sender: FDA-Public Use
  Company Number: US-PFIZER INC-2014103844

PATIENT
  Age: 54 Year
  Sex: Male
  Weight: 90.7 kg

DRUGS (2)
  1. GABAPENTIN [Suspect]
     Indication: NEUROPATHY PERIPHERAL
     Dosage: UNK
     Dates: start: 2011
  2. GABAPENTIN [Suspect]
     Dosage: 300 MG, 3X/DAY
     Dates: start: 2014, end: 2014

REACTIONS (2)
  - Hypoaesthesia [Unknown]
  - Blister [Unknown]
